FAERS Safety Report 8798208 (Version 1)
Quarter: 2012Q4

REPORT INFORMATION
  Report Type: 
  Country: BR (occurrence: BR)
  Receive Date: 20120920
  Receipt Date: 20120920
  Transmission Date: 20130627
  Serious: Yes (Other)
  Sender: FDA-Public Use
  Company Number: BR-AMGEN-BRASP2012046070

PATIENT
  Age: 9 Year
  Sex: Female
  Weight: 39 kg

DRUGS (4)
  1. ENBREL [Suspect]
     Indication: JUVENILE ARTHRITIS
     Dosage: 25 mg, once weekly
     Route: 058
     Dates: start: 2010
  2. METHOTREXATE [Concomitant]
     Dosage: 7 tablets once weekly
  3. OMEPRAZOLE [Concomitant]
     Dosage: UNK
  4. FOLIC ACID [Concomitant]
     Dosage: UNK

REACTIONS (5)
  - Pain [Unknown]
  - Pyrexia [Unknown]
  - Abdominal pain [Unknown]
  - Vaginal discharge [Unknown]
  - Urinary tract infection [Unknown]
